FAERS Safety Report 5394650-6 (Version None)
Quarter: 2007Q3

REPORT INFORMATION
  Report Type: 
  Country: None (occurrence: None)
  Receive Date: 20070723
  Receipt Date: 20070716
  Transmission Date: 20080115
  Serious: Yes (Hospitalization)
  Sender: FDA-Public Use
  Company Number: FR-GENENTECH-241333

PATIENT
  Sex: Male

DRUGS (5)
  1. RAPTIVA [Suspect]
     Indication: PSORIASIS
     Dosage: 0.7 ML, UNK
     Route: 058
     Dates: start: 20060525, end: 20070228
  2. RAPTIVA [Suspect]
     Dosage: 0.5 ML, SINGLE
     Route: 058
     Dates: start: 20070413, end: 20070418
  3. ETIFOXINE [Concomitant]
     Indication: DRUG USE FOR UNKNOWN INDICATION
     Dosage: UNK, TID
     Dates: start: 20060601
  4. TIANEPTINE [Concomitant]
     Indication: DRUG USE FOR UNKNOWN INDICATION
     Dosage: UNK, TID
     Dates: start: 20060601
  5. DOLIPRANE [Concomitant]
     Indication: DRUG USE FOR UNKNOWN INDICATION

REACTIONS (3)
  - CYTOLYTIC HEPATITIS [None]
  - PSORIASIS [None]
  - PSORIATIC ARTHROPATHY [None]
